FAERS Safety Report 4767387-1 (Version None)
Quarter: 2005Q3

REPORT INFORMATION
  Report Type: 
  Country: None (occurrence: None)
  Receive Date: 20050913
  Receipt Date: 20050907
  Transmission Date: 20060218
  Serious: Yes (Other)
  Sender: FDA-Public Use
  Company Number: ES-MERCK-0509ESP00008

PATIENT
  Age: 68 Year
  Sex: Female

DRUGS (4)
  1. ZOCOR [Suspect]
     Route: 048
     Dates: start: 20050301, end: 20050727
  2. ASPIRIN [Concomitant]
     Route: 048
     Dates: start: 20050201
  3. BISOPROLOL FUMARATE [Concomitant]
     Route: 048
     Dates: start: 20050201
  4. AMLODIPINE BESYLATE [Concomitant]
     Route: 048
     Dates: start: 20050201

REACTIONS (1)
  - MYOSITIS [None]
